FAERS Safety Report 10139539 (Version 2)
Quarter: 2014Q2

REPORT INFORMATION
  Report Type: Spontaneous
  Country: US (occurrence: US)
  Receive Date: 20140429
  Receipt Date: 20140429
  Transmission Date: 20141212
  Serious: No
  Sender: FDA-Public Use
  Company Number: US-009507513-1403USA004583

PATIENT
  Age: 72 Year
  Sex: Male

DRUGS (1)
  1. CLARITIN REDITABS [Suspect]
     Indication: ECZEMA
     Dosage: UNK, UNKNOWN
     Route: 048
     Dates: start: 201402, end: 201403

REACTIONS (2)
  - Off label use [Unknown]
  - Drug ineffective [Unknown]
